FAERS Safety Report 8236599-7 (Version None)
Quarter: 2012Q1

REPORT INFORMATION
  Report Type: 
  Country: None (occurrence: None)
  Receive Date: 20120326
  Receipt Date: 20120326
  Transmission Date: 20120608
  Serious: No
  Sender: FDA-Public Use
  Company Number: None

PATIENT
  Age: 69 Year
  Sex: Female
  Weight: 78.4723 kg

DRUGS (1)
  1. BYETTA [Suspect]
     Indication: DIABETES MELLITUS
     Dosage: 5MG BYETTA 2 TIMES A DAY
     Dates: start: 20111201, end: 20120101

REACTIONS (5)
  - VOMITING [None]
  - INSOMNIA [None]
  - COUGH [None]
  - BLOOD GLUCOSE ABNORMAL [None]
  - BLOOD PRESSURE FLUCTUATION [None]
